FAERS Safety Report 4402868-1 (Version None)
Quarter: 2004Q3

REPORT INFORMATION
  Report Type: 
  Country: None (occurrence: None)
  Receive Date: 20040719
  Receipt Date: 20040706
  Transmission Date: 20050211
  Serious: Yes (Death)
  Sender: FDA-Public Use
  Company Number: B0338507A

PATIENT
  Sex: 0

DRUGS (3)
  1. ALKERAN [Suspect]
     Indication: NEOPLASM MALIGNANT
     Dosage: 220 MG/M2/INTRAVENOUS INFUSION
  2. DOXORUBICIN HCL [Concomitant]
  3. RADIOTHERAPY [Concomitant]

REACTIONS (1)
  - CARDIAC FAILURE CONGESTIVE [None]
